FAERS Safety Report 8287717-6 (Version None)
Quarter: 2012Q2

REPORT INFORMATION
  Report Type: 
  Country: None (occurrence: None)
  Receive Date: 20120416
  Receipt Date: 20120416
  Transmission Date: 20120825
  Serious: Yes (Other)
  Sender: FDA-Public Use
  Company Number: ES-PFIZER INC-2012093409

PATIENT
  Age: 22 Year
  Sex: Male

DRUGS (3)
  1. CELEBREX [Suspect]
     Indication: ARTHRALGIA
     Dosage: 200 MG, 1X/DAY
     Route: 048
     Dates: start: 20110302, end: 20110302
  2. RHINOCORT [Concomitant]
     Dosage: UNK
     Route: 055
     Dates: start: 20100616
  3. SYMBICORT [Concomitant]
     Dosage: UNK
     Route: 055
     Dates: start: 20090109

REACTIONS (2)
  - LARYNGEAL OEDEMA [None]
  - RESPIRATORY DISTRESS [None]
